FAERS Safety Report 7533138-0 (Version None)
Quarter: 2011Q2

REPORT INFORMATION
  Report Type: 
  Country: None (occurrence: None)
  Receive Date: 20110608
  Receipt Date: 20110608
  Transmission Date: 20111010
  Serious: Yes (Hospitalization)
  Sender: FDA-Public Use
  Company Number: CH-PFIZER INC-2011102047

PATIENT
  Age: 22 Year
  Sex: Female

DRUGS (3)
  1. LINEZOLID [Suspect]
     Dosage: 600 MG, 2X/DAY
     Route: 042
  2. LINEZOLID [Suspect]
     Indication: OSTEOMYELITIS
     Dosage: 600 MG, 2X/DAY
     Route: 048
     Dates: start: 20110507, end: 20110510
  3. CIPROFLOXACIN [Concomitant]
     Dosage: UNK
     Route: 048
     Dates: start: 20110507, end: 20110510

REACTIONS (7)
  - TACHYCARDIA [None]
  - DYSPNOEA [None]
  - ABDOMINAL PAIN [None]
  - RASH [None]
  - INFUSION SITE PAIN [None]
  - CHEST DISCOMFORT [None]
  - ANAPHYLACTIC REACTION [None]
